FAERS Safety Report 8790471 (Version 2)
Quarter: 2012Q4

REPORT INFORMATION
  Report Type: Spontaneous
  Country: DK (occurrence: None)
  Receive Date: 20120906
  Receipt Date: 20121009
  Transmission Date: 20130627
  Serious: Yes (Life-Threatening)
  Sender: FDA-Public Use
  Company Number: 2012MA010640

PATIENT
  Age: 86 Year
  Sex: Male

DRUGS (7)
  1. BICALUTAMIDE [Suspect]
     Indication: PROSTATE CANCER
     Route: 048
     Dates: start: 20120801
  2. WARFARIN (WARFARIN) [Suspect]
     Route: 048
  3. ATORVASTATIN [Concomitant]
  4. TAMSULOSIN [Concomitant]
  5. BENDROFLUMETHIAZIDE [Concomitant]
  6. NICORANDIL [Concomitant]
  7. BISOPROLOL [Concomitant]

REACTIONS (2)
  - International normalised ratio increased [None]
  - Haematuria [None]
